FAERS Safety Report 9223927 (Version 1)
Quarter: 2013Q2

REPORT INFORMATION
  Report Type: Spontaneous
  Country: US (occurrence: US)
  Receive Date: 20130411
  Receipt Date: 20130411
  Transmission Date: 20140414
  Serious: No
  Sender: FDA-Public Use
  Company Number: US-BIOGENIDEC-2013BI030823

PATIENT
  Age: 46 Year
  Sex: Female

DRUGS (1)
  1. AVONEX [Suspect]
     Indication: MULTIPLE SCLEROSIS
     Route: 030
     Dates: start: 20120521

REACTIONS (5)
  - Loss of control of legs [Recovered/Resolved]
  - Hypoaesthesia [Recovered/Resolved]
  - Intervertebral disc protrusion [Unknown]
  - Paraesthesia [Recovered/Resolved]
  - Chest pain [Recovered/Resolved]
